FAERS Safety Report 5894255-4 (Version None)
Quarter: 2008Q3

REPORT INFORMATION
  Report Type: 
  Country: None (occurrence: None)
  Receive Date: 20080923
  Receipt Date: 20080317
  Transmission Date: 20090109
  Serious: No
  Sender: FDA-Public Use
  Company Number: US-ASTRAZENECA-2008UW05373

PATIENT
  Age: 68 Year
  Sex: Male

DRUGS (6)
  1. SEROQUEL [Suspect]
     Indication: SLEEP DISORDER THERAPY
     Dosage: 50MG TO 150MG
     Route: 048
  2. WELLBUTRIN [Concomitant]
  3. ZETIA [Concomitant]
  4. ALLEGRA [Concomitant]
  5. DIAZEPAM [Concomitant]
  6. ROSERUM [Concomitant]

REACTIONS (3)
  - CHRONIC FATIGUE SYNDROME [None]
  - DIZZINESS [None]
  - ORTHOSTATIC HYPOTENSION [None]
